FAERS Safety Report 7521627-4 (Version None)
Quarter: 2011Q2

REPORT INFORMATION
  Report Type: 
  Country: None (occurrence: None)
  Receive Date: 20110524
  Receipt Date: 20110512
  Transmission Date: 20111010
  Serious: Yes (Other)
  Sender: FDA-Public Use
  Company Number: ACO_24433_2011

PATIENT
  Age: 50 Year
  Sex: Female

DRUGS (2)
  1. AMPYRA [Suspect]
     Indication: GAIT DISTURBANCE
     Dates: start: 20101101, end: 20101201
  2. TYSABRI [Concomitant]

REACTIONS (3)
  - MUSCULAR WEAKNESS [None]
  - FALL [None]
  - HAND FRACTURE [None]
